FAERS Safety Report 13152970 (Version 1)
Quarter: 2017Q1

REPORT INFORMATION
  Report Type: Spontaneous
  Country: US (occurrence: US)
  Receive Date: 20170126
  Receipt Date: 20170126
  Transmission Date: 20170428
  Serious: No
  Sender: FDA-Public Use
  Company Number: US-GLENMARK PHARMACEUTICALS-2016GMK022133

PATIENT

DRUGS (1)
  1. INDOMETHACIN CAPSULES USP, 50MG [Suspect]
     Active Substance: INDOMETHACIN
     Indication: GOUT
     Dosage: 50 MG, TID
     Route: 048
     Dates: start: 20160222, end: 20160224

REACTIONS (4)
  - Gout [Recovered/Resolved]
  - Drug ineffective [Unknown]
  - Product quality issue [Unknown]
  - Product substitution issue [Unknown]
